FAERS Safety Report 7031491-8 (Version None)
Quarter: 2010Q4

REPORT INFORMATION
  Report Type: 
  Country: None (occurrence: None)
  Receive Date: 20101005
  Receipt Date: 20101005
  Transmission Date: 20110411
  Serious: Yes (Hospitalization)
  Sender: FDA-Public Use
  Company Number: None

PATIENT
  Age: 65 Year
  Sex: Male
  Weight: 84.2 kg

DRUGS (2)
  1. WARFARIN SODIUM [Suspect]
     Indication: ATRIAL FIBRILLATION
     Dosage: 7.5 MG EVERY DAY PO
     Route: 048
     Dates: start: 20080410
  2. CLOPIDOGREL [Suspect]
     Dosage: 75 MG EVERY DAY PO
     Route: 048
     Dates: start: 20100715

REACTIONS (4)
  - ACUTE HEPATIC FAILURE [None]
  - GASTROINTESTINAL HAEMORRHAGE [None]
  - HAEMORRHAGE [None]
  - INTERNATIONAL NORMALISED RATIO INCREASED [None]
